FAERS Safety Report 9185579 (Version 1)
Quarter: 2013Q1

REPORT INFORMATION
  Report Type: Spontaneous
  Country: US (occurrence: US)
  Receive Date: 20130325
  Receipt Date: 20130325
  Transmission Date: 20140127
  Serious: No
  Sender: FDA-Public Use
  Company Number: US-BIOGENIDEC-2013BI021796

PATIENT
  Age: 29 None
  Sex: Male

DRUGS (1)
  1. AVONEX [Suspect]
     Indication: MULTIPLE SCLEROSIS
     Route: 030
     Dates: start: 20130201

REACTIONS (4)
  - Hypoaesthesia [Recovered/Resolved]
  - Ageusia [Unknown]
  - Influenza like illness [Recovered/Resolved]
  - Anxiety [Unknown]
